FAERS Safety Report 4983169-X (Version None)
Quarter: 2006Q2

REPORT INFORMATION
  Report Type: 
  Country: None (occurrence: None)
  Receive Date: 20060426
  Receipt Date: 20060414
  Transmission Date: 20061013
  Serious: Yes (Hospitalization)
  Sender: FDA-Public Use
  Company Number: US-KINGPHARMUSA00001-K200600487

PATIENT
  Age: 47 Year
  Sex: Male

DRUGS (2)
  1. ALTACE [Suspect]
     Indication: ARTERIOSCLEROSIS
     Dosage: 5 MG, QD
     Route: 048
     Dates: start: 20010101
  2. ATORVASTATIN CALCIUM [Concomitant]
     Dosage: 20 MG, UNK
     Route: 048

REACTIONS (4)
  - INFECTION [None]
  - SALIVARY GLAND CALCULUS [None]
  - SWELLING FACE [None]
  - SWOLLEN TONGUE [None]
